FAERS Safety Report 10355950 (Version 2)
Quarter: 2015Q1

REPORT INFORMATION
  Report Type: Report from Study
  Country: JP (occurrence: JP)
  Receive Date: 20140801
  Receipt Date: 20150205
  Transmission Date: 20150720
  Serious: Yes (Other)
  Sender: FDA-Public Use
  Company Number: JP-ROCHE-1439533

PATIENT

DRUGS (4)
  1. IRINOTECAN [Suspect]
     Active Substance: IRINOTECAN
     Indication: COLORECTAL CANCER METASTATIC
     Dosage: 24 HOUR INFUSION ON DAY 1 AND 15
     Route: 042
  2. BEVACIZUMAB [Suspect]
     Active Substance: BEVACIZUMAB
     Indication: COLORECTAL CANCER METASTATIC
     Route: 042
  3. S-1 [Suspect]
     Active Substance: GIMERACIL\OTERACIL\TEGAFUR
     Indication: COLORECTAL CANCER METASTATIC
     Route: 048
  4. IRINOTECAN [Suspect]
     Active Substance: IRINOTECAN
     Dosage: 24 HOUR INFUSION ON DAY 1 AND 15
     Route: 042

REACTIONS (10)
  - Neutropenia [Unknown]
  - Haemoglobin decreased [Unknown]
  - Leukopenia [Unknown]
  - Thrombocytopenia [Unknown]
  - Decreased appetite [Unknown]
  - Vomiting [Unknown]
  - Rash [Unknown]
  - Hepatic function abnormal [Unknown]
  - Fatigue [Unknown]
  - Diarrhoea [Unknown]
